FAERS Safety Report 15571030 (Version 1)
Quarter: 2018Q4

REPORT INFORMATION
  Report Type: Spontaneous
  Country: KR (occurrence: KR)
  Receive Date: 20181031
  Receipt Date: 20181031
  Transmission Date: 20190205
  Serious: Yes (Other)
  Sender: FDA-Public Use
  Company Number: KR-009507513-1810KOR013134

PATIENT
  Age: 39 Year
  Sex: Female

DRUGS (1)
  1. ZEPATIER [Suspect]
     Active Substance: ELBASVIR\GRAZOPREVIR
     Dosage: UNK
     Route: 048

REACTIONS (4)
  - Aspartate aminotransferase increased [Unknown]
  - Hepatitis viral [Unknown]
  - Alanine aminotransferase increased [Unknown]
  - Fatigue [Unknown]
